FAERS Safety Report 23614347 (Version 1)
Quarter: 2024Q1

REPORT INFORMATION
  Report Type: Spontaneous
  Country: NL (occurrence: NL)
  Receive Date: 20240311
  Receipt Date: 20240311
  Transmission Date: 20240409
  Serious: Yes (Hospitalization, Other)
  Sender: FDA-Public Use
  Company Number: None

PATIENT
  Age: 76 Year
  Sex: Female
  Weight: 106 kg

DRUGS (3)
  1. CAPECITABINE [Suspect]
     Active Substance: CAPECITABINE
     Indication: Colon cancer metastatic
     Dosage: 2X PER DAY 5 PIECES
     Dates: start: 20240110
  2. BEVACIZUMAB [Suspect]
     Active Substance: BEVACIZUMAB
     Indication: Colon cancer metastatic
     Dosage: 1X PER DAY 725MG IN 100 ML 0.9% NACL
     Dates: start: 20240110
  3. POTASSIUM CHLORIDE [Concomitant]
     Active Substance: POTASSIUM CHLORIDE
     Dosage: 2L 0.9% NACL WITH 80MMOL KCL

REACTIONS (7)
  - Diarrhoea [Unknown]
  - Mucosal inflammation [Recovering/Resolving]
  - Anaemia [Unknown]
  - Pain [Unknown]
  - Rectal haemorrhage [Unknown]
  - Hypokalaemia [Unknown]
  - Leukopenia [Unknown]
